FAERS Safety Report 12620957 (Version 1)
Quarter: 2016Q3

REPORT INFORMATION
  Report Type: Spontaneous
  Country: US (occurrence: US)
  Receive Date: 20160804
  Receipt Date: 20160804
  Transmission Date: 20161109
  Serious: No
  Sender: FDA-Public Use
  Company Number: US-BEH-2016071770

PATIENT
  Age: 42 Year
  Sex: Female

DRUGS (1)
  1. ZEMAIRA [Suspect]
     Active Substance: .ALPHA.1-PROTEINASE INHIBITOR HUMAN
     Indication: ALPHA-1 ANTI-TRYPSIN DEFICIENCY
     Dosage: 4680 MG, QW
     Route: 042
     Dates: start: 20140811

REACTIONS (3)
  - Pyrexia [Unknown]
  - Tremor [Unknown]
  - Chills [Unknown]

NARRATIVE: CASE EVENT DATE: 20160229
